FAERS Safety Report 7423340-0 (Version None)
Quarter: 2011Q2

REPORT INFORMATION
  Report Type: 
  Country: None (occurrence: None)
  Receive Date: 20110419
  Receipt Date: 20110405
  Transmission Date: 20111010
  Serious: Yes (Hospitalization, Other)
  Sender: FDA-Public Use
  Company Number: PHHY2011FR28475

PATIENT
  Sex: Female

DRUGS (16)
  1. HYPERIUM [Concomitant]
     Dosage: 1 MG, QD (IN THE EVENING)
  2. REPAGLINIDE [Concomitant]
     Dosage: 1.5 MG, BEFORE LUNCH
  3. SIMVASTATIN [Concomitant]
     Dosage: 40 MG, QD (IN THE MORNING)
  4. SERESTA [Concomitant]
     Dosage: 50 MG IN THE EVENING AND 25 MG AT BEDTIME
  5. STILNOX [Concomitant]
     Dosage: 10 MG, QD (ONCE AT BEDTIME)
  6. METFORMIN [Concomitant]
     Dosage: 1000 MG, TID
     Route: 048
  7. BIPRETERAX [Suspect]
     Dosage: UNK, QD
     Route: 048
     Dates: end: 20100128
  8. LEVOTHYROX [Concomitant]
     Dosage: 125 UG, QD (IN THE MORNING)
  9. LEPTICUR [Concomitant]
     Dosage: 10 MG, BID
  10. DEPAMIDE [Concomitant]
     Dosage: 300 MG, BID
  11. REPAGLINIDE [Concomitant]
     Dosage: 2 MG, BEFORE DINNER
  12. TARDYFERON [Concomitant]
     Dosage: 80 MG, QD (IN THE MORNING)
  13. COTAREG [Suspect]
     Dosage: UNK, QD
     Route: 048
     Dates: end: 20100128
  14. REPAGLINIDE [Concomitant]
     Dosage: 0.5 MG, BEFORE BREAKFAST
  15. BISOPROLOL [Concomitant]
     Dosage: 10 MG, QD
  16. ASPEGIC 325 [Concomitant]
     Dosage: 100 MG, QD (IN THE MORNING)

REACTIONS (9)
  - TACHYCARDIA [None]
  - HYPONATRAEMIA [None]
  - HYPOKALAEMIA [None]
  - DEHYDRATION [None]
  - GASTROENTERITIS [None]
  - HYPOKINESIA [None]
  - KETONURIA [None]
  - SKIN WRINKLING [None]
  - HYPERGLYCAEMIA [None]
